FAERS Safety Report 8065154-7 (Version None)
Quarter: 2012Q1

REPORT INFORMATION
  Report Type: 
  Country: None (occurrence: None)
  Receive Date: 20120117
  Receipt Date: 20120110
  Transmission Date: 20120608
  Serious: Yes (Death)
  Sender: FDA-Public Use
  Company Number: 1000026990

PATIENT
  Age: 58 Year
  Sex: Female

DRUGS (7)
  1. ANTIHYPERLIPIDEMIC (NOS) (ANTIHYPERLIPIDEMIC (NOS)) [Suspect]
  2. LEVOTHROID [Suspect]
  3. CALCIUM ANTAGOINST (NOS) (CALCIUM ANTAGONIST (NOS)) [Suspect]
  4. CARDIAC GLYCOSIDE (NOS) (CARDIAC GLYCOSIDE (NOS)) [Suspect]
  5. DIPHENHYDRAMINE HCL [Suspect]
  6. BENZODIAZEPINE (NOS) (BENZOEDIAZEPINE (NOS) [Suspect]
  7. CARPROFEN (CARPROFEN) [Suspect]

REACTIONS (2)
  - CARDIO-RESPIRATORY ARREST [None]
  - COMPLETED SUICIDE [None]
